FAERS Safety Report 8271929-1 (Version None)
Quarter: 2012Q2

REPORT INFORMATION
  Report Type: 
  Country: None (occurrence: None)
  Receive Date: 20120410
  Receipt Date: 20120406
  Transmission Date: 20120825
  Serious: Yes (Death)
  Sender: FDA-Public Use
  Company Number: MY-JNJFOC-20120402731

PATIENT

DRUGS (2)
  1. DOXORUBICIN HCL [Suspect]
     Indication: HEPATIC NEOPLASM MALIGNANT
     Route: 042
  2. DOXORUBICIN HCL [Suspect]
     Route: 013

REACTIONS (1)
  - TUMOUR RUPTURE [None]
